FAERS Safety Report 9841469 (Version 2)
Quarter: 2014Q2

REPORT INFORMATION
  Report Type: Spontaneous
  Country: US (occurrence: None)
  Receive Date: 20131223
  Receipt Date: 20140530
  Transmission Date: 20141212
  Serious: No
  Sender: FDA-Public Use
  Company Number: 222641LEO

PATIENT
  Age: 31 Year
  Sex: Male

DRUGS (1)
  1. PICATO GEL [Suspect]
     Indication: ACTINIC KERATOSIS
     Dosage: 1 IN 1 D, TOPICAL
     Route: 061
     Dates: start: 20130711, end: 20130713

REACTIONS (3)
  - Application site pain [None]
  - Application site scab [None]
  - Application site haemorrhage [None]
